FAERS Safety Report 12273342 (Version 1)
Quarter: 2016Q2

REPORT INFORMATION
  Report Type: Spontaneous
  Country: FR (occurrence: FR)
  Receive Date: 20160415
  Receipt Date: 20160415
  Transmission Date: 20160815
  Serious: Yes (Life-Threatening)
  Sender: FDA-Public Use
  Company Number: FR-AMGEN-FRASP2016047152

PATIENT
  Age: 66 Year
  Sex: Male
  Weight: 80 kg

DRUGS (14)
  1. LANTUS [Concomitant]
     Active Substance: INSULIN GLARGINE
     Dosage: UNK
  2. NOVORAPID [Concomitant]
     Active Substance: INSULIN ASPART
     Dosage: UNK
  3. NOVONORM [Concomitant]
     Active Substance: REPAGLINIDE
     Dosage: UNK
  4. CORTICOSTEROIDS [Concomitant]
     Active Substance: CORTICOSTEROID NOS
     Indication: RESPIRATORY DISTRESS
     Dosage: UNK
     Dates: start: 20160323
  5. MAGNESIUM SULFATE. [Concomitant]
     Active Substance: MAGNESIUM SULFATE
     Indication: RESPIRATORY DISTRESS
     Dosage: UNK
     Dates: start: 20160323
  6. VICTOZA [Concomitant]
     Active Substance: LIRAGLUTIDE
     Dosage: UNK
  7. BRICANYL [Concomitant]
     Active Substance: TERBUTALINE SULFATE
     Dosage: UNK
  8. ANTIBIOTICS [Concomitant]
     Active Substance: UNSPECIFIED INGREDIENT
     Indication: RESPIRATORY DISTRESS
     Dosage: UNK
     Dates: start: 20160323
  9. APROVEL [Concomitant]
     Active Substance: IRBESARTAN
     Dosage: UNK
  10. PROCORALAN [Suspect]
     Active Substance: IVABRADINE
     Indication: TROPONIN INCREASED
     Dosage: 5 MG, QD
     Route: 048
     Dates: start: 20160323, end: 20160325
  11. MOPRAL [Concomitant]
     Active Substance: OMEPRAZOLE SODIUM
     Dosage: UNK
  12. FORLAX [Concomitant]
     Active Substance: POLYETHYLENE GLYCOL 4000
     Dosage: UNK
  13. BRILIQUE [Suspect]
     Active Substance: TICAGRELOR
     Indication: TROPONIN INCREASED
     Dosage: 90 MG, BID
     Route: 048
     Dates: start: 20160323, end: 20160325
  14. ATARAX [Concomitant]
     Active Substance: HYDROXYZINE\HYDROXYZINE HYDROCHLORIDE
     Dosage: UNK

REACTIONS (2)
  - Atrioventricular block complete [Not Recovered/Not Resolved]
  - Sinus arrest [Not Recovered/Not Resolved]
